FAERS Safety Report 6058761-4 (Version None)
Quarter: 2009Q1

REPORT INFORMATION
  Report Type: 
  Country: None (occurrence: None)
  Receive Date: 20090130
  Receipt Date: 20090120
  Transmission Date: 20090719
  Serious: Yes (Other)
  Sender: FDA-Public Use
  Company Number: GB-JNJFOC-20090104763

PATIENT
  Age: 52 Year
  Sex: Male

DRUGS (3)
  1. REMICADE [Suspect]
     Indication: COLITIS ULCERATIVE
     Route: 042
  2. LIPITOR [Concomitant]
  3. LIPITOR [Concomitant]

REACTIONS (2)
  - HYPOAESTHESIA [None]
  - PAIN [None]
